FAERS Safety Report 10268470 (Version 1)
Quarter: 2014Q2

REPORT INFORMATION
  Report Type: Spontaneous
  Country: GB (occurrence: GB)
  Receive Date: 20140630
  Receipt Date: 20140630
  Transmission Date: 20141212
  Serious: Yes (Other)
  Sender: FDA-Public Use
  Company Number: GB-WATSON-2014-13742

PATIENT
  Age: 35 Year
  Sex: Male
  Weight: 107 kg

DRUGS (3)
  1. ATRACURIUM (UNKNOWN) [Suspect]
     Indication: NEUROMUSCULAR BLOCKADE
     Dosage: 20 MG, UNKNOWN
     Route: 042
  2. SUXAMETHONIUM [Concomitant]
     Indication: INDUCTION OF ANAESTHESIA
     Dosage: 100 MG, UNKNOWN
     Route: 065
  3. THIOPENTONE                        /00053401/ [Concomitant]
     Indication: INDUCTION OF ANAESTHESIA
     Dosage: 500 MG, UNKNOWN
     Route: 065

REACTIONS (3)
  - Bronchospasm [Recovered/Resolved]
  - Wheezing [Recovered/Resolved]
  - Flushing [Recovered/Resolved]
